FAERS Safety Report 15167538 (Version 2)
Quarter: 2018Q3

REPORT INFORMATION
  Report Type: Report from Study
  Country: US (occurrence: US)
  Receive Date: 20180719
  Receipt Date: 20180731
  Transmission Date: 20181010
  Serious: Yes (Hospitalization)
  Sender: FDA-Public Use
  Company Number: US-ACTELION-A-US2016-140422

PATIENT
  Age: 25 Year
  Sex: Female
  Weight: 105.67 kg

DRUGS (6)
  1. VELETRI [Suspect]
     Active Substance: EPOPROSTENOL
     Dosage: UNK
     Route: 042
  2. ADEMPAS [Concomitant]
     Active Substance: RIOCIGUAT
     Dosage: 0.5 MG, TID
     Route: 048
  3. LETAIRIS [Suspect]
     Active Substance: AMBRISENTAN
     Indication: PULMONARY ARTERIAL HYPERTENSION
     Route: 065
  4. VELETRI [Suspect]
     Active Substance: EPOPROSTENOL
     Indication: PULMONARY ARTERIAL HYPERTENSION
     Dosage: 22 NG/KG, PER MIN
     Route: 042
     Dates: start: 20150824
  5. ADEMPAS [Concomitant]
     Active Substance: RIOCIGUAT
     Dosage: 0.5 MG, BID
     Route: 048
  6. WARFARIN [Concomitant]
     Active Substance: WARFARIN

REACTIONS (17)
  - Headache [Unknown]
  - Nausea [Unknown]
  - Catheter site pain [Unknown]
  - Pharyngitis [Unknown]
  - Diarrhoea [Unknown]
  - Cough [Unknown]
  - Device breakage [Unknown]
  - Pain in jaw [Unknown]
  - Gait disturbance [Unknown]
  - Dizziness [Unknown]
  - Infection [Unknown]
  - Weight increased [Unknown]
  - Viral infection [Unknown]
  - Nasopharyngitis [Unknown]
  - Disturbance in attention [Unknown]
  - Central venous catheterisation [Unknown]
  - Catheter site pruritus [Unknown]

NARRATIVE: CASE EVENT DATE: 20180712
